FAERS Safety Report 21198808 (Version 1)
Quarter: 2022Q3

REPORT INFORMATION
  Report Type: Spontaneous
  Country: US (occurrence: US)
  Receive Date: 20220811
  Receipt Date: 20220811
  Transmission Date: 20221027
  Serious: No
  Sender: FDA-Public Use
  Company Number: US-Kaleo, Inc.-2022KL000051

PATIENT
  Age: 12 Year
  Sex: Male

DRUGS (1)
  1. AUVI-Q [Suspect]
     Active Substance: EPINEPHRINE

REACTIONS (2)
  - Product temperature excursion issue [Not Recovered/Not Resolved]
  - Device leakage [Not Recovered/Not Resolved]
